FAERS Safety Report 25937512 (Version 2)
Quarter: 2025Q4

REPORT INFORMATION
  Report Type: Spontaneous
  Country: US (occurrence: US)
  Receive Date: 20251018
  Receipt Date: 20251031
  Transmission Date: 20260117
  Serious: Yes (Other)
  Sender: TEVA
  Company Number: US-TEVA-VS-3381879

PATIENT
  Age: 17 Year
  Sex: Male

DRUGS (8)
  1. IBUPROFEN [Suspect]
     Active Substance: IBUPROFEN
  2. IBUPROFEN [Suspect]
     Active Substance: IBUPROFEN
  3. MORPHINE [Suspect]
     Active Substance: MORPHINE
     Indication: Cancer pain
     Route: 065
  4. TRAMADOL [Suspect]
     Active Substance: TRAMADOL
     Indication: Cancer pain
     Route: 065
  5. OXYCODONE [Suspect]
     Active Substance: OXYCODONE
     Indication: Cancer pain
     Route: 065
  6. DIPHENHYDRAMINE [Suspect]
     Active Substance: DIPHENHYDRAMINE
     Indication: Cancer pain
     Route: 065
  7. GABAPENTIN [Suspect]
     Active Substance: GABAPENTIN
     Indication: Cancer pain
     Route: 065
  8. HYDROCODONE [Suspect]
     Active Substance: HYDROCODONE
     Indication: Cancer pain
     Route: 065

REACTIONS (4)
  - Sedation [Unknown]
  - Nausea [Unknown]
  - Drug intolerance [Unknown]
  - Therapy non-responder [Unknown]
